FAERS Safety Report 7759367-9 (Version None)
Quarter: 2011Q3

REPORT INFORMATION
  Report Type: 
  Country: None (occurrence: None)
  Receive Date: 20110919
  Receipt Date: 20110915
  Transmission Date: 20111222
  Serious: No
  Sender: FDA-Public Use
  Company Number: US-BRACCO-006693

PATIENT
  Sex: Female

DRUGS (3)
  1. CARDIOGEN-82 [Suspect]
     Indication: CHEST PAIN
     Dosage: ADMINISTERED 53.1 MILLICURIES AT REST AND 52.6 MILLICURIES AT PEAK STRESS
     Dates: start: 20110407, end: 20110407
  2. LEXISCAN [Concomitant]
     Dates: start: 20110407, end: 20110407
  3. CARDIOGEN-82 [Suspect]
     Indication: POSITRON EMISSION TOMOGRAM
     Dosage: ADMINISTERED 53.1 MILLICURIES AT REST AND 52.6 MILLICURIES AT PEAK STRESS
     Dates: start: 20110407, end: 20110407

REACTIONS (1)
  - RADIATION EXPOSURE [None]
